FAERS Safety Report 22617786 (Version 1)
Quarter: 2023Q2

REPORT INFORMATION
  Report Type: Spontaneous
  Country: IT (occurrence: IT)
  Receive Date: 20230620
  Receipt Date: 20230620
  Transmission Date: 20230722
  Serious: Yes (Other)
  Sender: FDA-Public Use
  Company Number: None

PATIENT
  Age: 61 Year
  Sex: Male

DRUGS (2)
  1. SIMPONI [Suspect]
     Active Substance: GOLIMUMAB
     Indication: Undifferentiated spondyloarthritis
     Dosage: 1 FL SC EVERY 28 DAYS
     Route: 058
     Dates: start: 201610, end: 20230101
  2. SIMPONI [Suspect]
     Active Substance: GOLIMUMAB
     Indication: Colitis ulcerative

REACTIONS (2)
  - Drug ineffective [Recovering/Resolving]
  - Polyarthritis [Recovering/Resolving]

NARRATIVE: CASE EVENT DATE: 20230101
